FAERS Safety Report 14318806 (Version 18)
Quarter: 2021Q1

REPORT INFORMATION
  Report Type: Spontaneous
  Country: CA (occurrence: CA)
  Receive Date: 20171222
  Receipt Date: 20210301
  Transmission Date: 20210419
  Serious: Yes (Other)
  Sender: FDA-Public Use
  Company Number: CA-CELLTRION INC.-2017CA016470

PATIENT

DRUGS (13)
  1. INFLECTRA [Suspect]
     Active Substance: INFLIXIMAB-DYYB
     Indication: COLITIS ULCERATIVE
     Dosage: 10 MG/KG, (ROUND TO 500 MG), AT 0, 2, 6, THEN EVERY 8 WEEKS
     Route: 042
     Dates: start: 20171109
  2. INFLECTRA [Suspect]
     Active Substance: INFLIXIMAB-DYYB
     Dosage: 300 MG, EVERY 6 WEEKS
     Route: 042
     Dates: start: 20190207, end: 20190207
  3. INFLECTRA [Suspect]
     Active Substance: INFLIXIMAB-DYYB
     Dosage: 300 MG, EVERY 8 WEEKS
     Route: 042
     Dates: start: 20171109
  4. INFLECTRA [Suspect]
     Active Substance: INFLIXIMAB-DYYB
     Dosage: UNK
     Route: 042
     Dates: start: 20171228
  5. INFLECTRA [Suspect]
     Active Substance: INFLIXIMAB-DYYB
     Dosage: 300 MG, EVERY 8 WEEKS
     Route: 042
     Dates: start: 20190528
  6. INFLECTRA [Suspect]
     Active Substance: INFLIXIMAB-DYYB
     Dosage: 300 MG, EVERY 6 WEEKS
     Route: 042
     Dates: start: 20180601
  7. INFLECTRA [Suspect]
     Active Substance: INFLIXIMAB-DYYB
     Dosage: 300 MG, EVERY 8 WEEKS
     Route: 042
     Dates: start: 20190402
  8. PREDNISONE. [Concomitant]
     Active Substance: PREDNISONE
     Dosage: 35 MG FOR 2.5 MONTHS
     Route: 065
     Dates: start: 201705
  9. INFLECTRA [Suspect]
     Active Substance: INFLIXIMAB-DYYB
     Dosage: 300 MG, EVERY 8 WEEKS
     Route: 042
     Dates: start: 20180418, end: 20180418
  10. INFLECTRA [Suspect]
     Active Substance: INFLIXIMAB-DYYB
     Dosage: 300 MG, EVERY 6 WEEKS
     Route: 042
     Dates: start: 20181115, end: 20181115
  11. INFLECTRA [Suspect]
     Active Substance: INFLIXIMAB-DYYB
     Dosage: UNK
     Route: 042
     Dates: start: 20171123
  12. INFLECTRA [Suspect]
     Active Substance: INFLIXIMAB-DYYB
     Dosage: 300 MG, EVERY 8 WEEKS
     Route: 042
     Dates: start: 20180222, end: 20180418
  13. INFLECTRA [Suspect]
     Active Substance: INFLIXIMAB-DYYB
     Dosage: 300 MG, EVERY 8 WEEKS
     Route: 042
     Dates: start: 20190918

REACTIONS (12)
  - Clostridium difficile infection [Unknown]
  - Menstruation delayed [Not Recovered/Not Resolved]
  - Nasopharyngitis [Unknown]
  - Influenza [Unknown]
  - Genital herpes [Not Recovered/Not Resolved]
  - Vaginal infection [Recovered/Resolved]
  - Gastroenteritis [Recovered/Resolved]
  - Ear infection [Recovering/Resolving]
  - Weight increased [Not Recovered/Not Resolved]
  - Intentional product use issue [Unknown]
  - Condition aggravated [Recovering/Resolving]
  - Off label use [Unknown]

NARRATIVE: CASE EVENT DATE: 201711
